FAERS Safety Report 23874753 (Version 1)
Quarter: 2024Q2

REPORT INFORMATION
  Report Type: Spontaneous
  Country: MY (occurrence: MY)
  Receive Date: 20240520
  Receipt Date: 20240520
  Transmission Date: 20240715
  Serious: Yes (Other)
  Sender: FDA-Public Use
  Company Number: MY-002147023-PHHY2019MY141683

PATIENT
  Age: 5 Year
  Sex: Male

DRUGS (1)
  1. VOLTAREN [Suspect]
     Active Substance: DICLOFENAC SODIUM
     Indication: Pyrexia
     Dosage: 12500 UG, Q8H
     Route: 054

REACTIONS (3)
  - Periorbital oedema [Recovering/Resolving]
  - Urticaria [Recovering/Resolving]
  - Face oedema [Recovering/Resolving]
